FAERS Safety Report 6657811-1 (Version None)
Quarter: 2010Q1

REPORT INFORMATION
  Report Type: 
  Country: None (occurrence: None)
  Receive Date: 20100330
  Receipt Date: 20100317
  Transmission Date: 20100710
  Serious: Yes (Hospitalization)
  Sender: FDA-Public Use
  Company Number: US-ELI_LILLY_AND_COMPANY-US201003005723

PATIENT
  Age: 30 Year
  Sex: Female

DRUGS (4)
  1. STRATTERA [Suspect]
     Dosage: 25 MG, UNK
     Dates: start: 20100101, end: 20100301
  2. STRATTERA [Suspect]
     Dosage: 40 MG, UNK
     Dates: start: 20100101, end: 20100301
  3. PROZAC [Suspect]
  4. TRAZODONE [Concomitant]

REACTIONS (2)
  - BLADDER OBSTRUCTION [None]
  - INTESTINAL OBSTRUCTION [None]
